FAERS Safety Report 22362124 (Version 5)
Quarter: 2024Q1

REPORT INFORMATION
  Report Type: Report from Study
  Country: JP (occurrence: JP)
  Receive Date: 20230524
  Receipt Date: 20240314
  Transmission Date: 20240410
  Serious: Yes (Hospitalization, Other)
  Sender: FDA-Public Use
  Company Number: JP-ARGENX-2023-ARGX-JP001561

PATIENT

DRUGS (13)
  1. VYVGART [Suspect]
     Active Substance: EFGARTIGIMOD ALFA-FCAB
     Indication: Myasthenia gravis
     Dosage: 400 MG
     Route: 041
     Dates: start: 20221019, end: 20221110
  2. VYVGART [Suspect]
     Active Substance: EFGARTIGIMOD ALFA-FCAB
     Dosage: 400 MG
     Route: 041
     Dates: start: 20230215, end: 20230308
  3. VYVGART [Suspect]
     Active Substance: EFGARTIGIMOD ALFA-FCAB
     Dosage: 400 MG
     Route: 041
     Dates: start: 20230502, end: 20230524
  4. PREDNISOLONE [Concomitant]
     Active Substance: PREDNISOLONE
     Indication: Myasthenia gravis
     Dosage: 10 MG
     Route: 048
     Dates: start: 20220630
  5. PROGRAF [Concomitant]
     Active Substance: TACROLIMUS
     Indication: Myasthenia gravis
     Dosage: 3 MG
     Route: 048
     Dates: start: 20221207, end: 20230501
  6. PROGRAF [Concomitant]
     Active Substance: TACROLIMUS
     Dosage: 4 MG
     Route: 048
     Dates: start: 20230502
  7. MESTINON [Concomitant]
     Active Substance: PYRIDOSTIGMINE BROMIDE
     Indication: Myasthenia gravis
     Dosage: 180 MG
     Route: 048
     Dates: start: 20220622, end: 20230621
  8. NEORAL [Concomitant]
     Active Substance: CYCLOSPORINE
     Indication: Myasthenia gravis
     Dosage: 25 MG
     Route: 048
     Dates: start: 20220914, end: 20221207
  9. LINAGLIPTIN [Concomitant]
     Active Substance: LINAGLIPTIN
     Indication: Product used for unknown indication
     Dosage: 5 MG
     Route: 048
     Dates: start: 20220914
  10. METFORMIN HYDROCHLORIDE [Concomitant]
     Active Substance: METFORMIN HYDROCHLORIDE
     Indication: Diabetes mellitus
     Dosage: 500 MG
     Route: 048
     Dates: start: 20220914
  11. FUROSEMIDE [Concomitant]
     Active Substance: FUROSEMIDE
     Indication: Product used for unknown indication
     Dosage: 10 MG
     Route: 048
     Dates: start: 20220914
  12. AMLODIPINE [Concomitant]
     Active Substance: AMLODIPINE BESYLATE
     Indication: Product used for unknown indication
     Dosage: 10 MG
     Route: 048
     Dates: start: 20220914
  13. SPIRONOLACTONE [Concomitant]
     Active Substance: SPIRONOLACTONE
     Indication: Cardiac failure
     Dosage: 12.5 MG
     Route: 048
     Dates: start: 20230414

REACTIONS (7)
  - Symptom recurrence [Recovered/Resolved]
  - Renal impairment [Recovering/Resolving]
  - Symptom recurrence [Recovered/Resolved]
  - Cardiac failure [Recovered/Resolved]
  - Symptom recurrence [Unknown]
  - Therapeutic product effect incomplete [Unknown]
  - Therapeutic product effect incomplete [Unknown]

NARRATIVE: CASE EVENT DATE: 20230208
